FAERS Safety Report 26079520 (Version 1)
Quarter: 2025Q4

REPORT INFORMATION
  Report Type: Spontaneous
  Country: TW (occurrence: TW)
  Receive Date: 20251123
  Receipt Date: 20251123
  Transmission Date: 20260118
  Serious: Yes (Other)
  Sender: ASTELLAS
  Company Number: TW-ASTELLAS-2025-AER-063530

PATIENT
  Age: 44 Year
  Sex: Female
  Weight: 52 kg

DRUGS (32)
  1. VYLOY [Suspect]
     Active Substance: ZOLBETUXIMAB-CLZB
     Indication: Gastric cancer recurrent
     Route: 042
     Dates: start: 20251027, end: 20251027
  2. VYLOY [Suspect]
     Active Substance: ZOLBETUXIMAB-CLZB
     Route: 042
     Dates: start: 2025
  3. LANSOPRAZOLE [Concomitant]
     Active Substance: LANSOPRAZOLE
     Indication: Gastric ulcer
     Route: 048
     Dates: start: 20251017, end: 20251103
  4. LANSOPRAZOLE [Concomitant]
     Active Substance: LANSOPRAZOLE
     Route: 048
     Dates: start: 202511
  5. EMEND (FOSAPREPITANT DIMEGLUMINE) [Concomitant]
     Active Substance: FOSAPREPITANT DIMEGLUMINE
     Indication: Chemotherapy side effect prophylaxis
     Route: 042
     Dates: start: 2025
  6. EMEND (FOSAPREPITANT DIMEGLUMINE) [Concomitant]
     Active Substance: FOSAPREPITANT DIMEGLUMINE
     Route: 042
     Dates: start: 20251027, end: 20251027
  7. FLUOROURACIL [Concomitant]
     Active Substance: FLUOROURACIL
     Indication: Gastric cancer
     Route: 042
     Dates: start: 2025
  8. FLUOROURACIL [Concomitant]
     Active Substance: FLUOROURACIL
     Dosage: 5-FU INJECTION 50MG/ML
     Route: 042
     Dates: start: 20251027, end: 20251027
  9. COVORIN [Concomitant]
     Indication: Gastric cancer
     Dosage: COVORIN INJECTION 10MG/ML
     Route: 042
     Dates: start: 20251027, end: 20251027
  10. COVORIN [Concomitant]
     Route: 042
     Dates: start: 2025
  11. ALOXI [Concomitant]
     Active Substance: PALONOSETRON HYDROCHLORIDE
     Indication: Chemotherapy side effect prophylaxis
     Route: 042
     Dates: start: 2025
  12. ALOXI [Concomitant]
     Active Substance: PALONOSETRON HYDROCHLORIDE
     Route: 042
     Dates: start: 20251027, end: 20251027
  13. ATROPINE SULFATE [Concomitant]
     Active Substance: ATROPINE SULFATE
     Indication: Chemotherapy side effect prophylaxis
     Route: 042
     Dates: start: 2025
  14. ATROPINE SULFATE [Concomitant]
     Active Substance: ATROPINE SULFATE
     Route: 042
     Dates: start: 20251027, end: 20251027
  15. IRINOTECAN HYDROCHLORIDE [Concomitant]
     Active Substance: IRINOTECAN HYDROCHLORIDE
     Indication: Gastric cancer
     Route: 042
     Dates: start: 2025
  16. IRINOTECAN HYDROCHLORIDE [Concomitant]
     Active Substance: IRINOTECAN HYDROCHLORIDE
     Route: 042
     Dates: start: 20251027, end: 20251027
  17. PRIMPERAN [Concomitant]
     Active Substance: METOCLOPRAMIDE HYDROCHLORIDE
     Indication: Antiemetic supportive care
     Route: 042
     Dates: start: 2025
  18. PRIMPERAN [Concomitant]
     Active Substance: METOCLOPRAMIDE HYDROCHLORIDE
     Dosage: PRIMPERAN 10MG/2ML INJECTABLE SOLUTION
     Route: 042
     Dates: start: 20251027, end: 20251027
  19. PRIMPERAN [Concomitant]
     Active Substance: METOCLOPRAMIDE HYDROCHLORIDE
     Route: 042
     Dates: start: 20251027, end: 20251030
  20. BETAMETHASONE [Concomitant]
     Active Substance: BETAMETHASONE
     Indication: Chemotherapy side effect prophylaxis
     Route: 042
     Dates: start: 2025
  21. BETAMETHASONE [Concomitant]
     Active Substance: BETAMETHASONE
     Dosage: RINDERON INJECTION 4MG/ML (BETAMETHASONE)
     Route: 042
     Dates: start: 20251027, end: 20251027
  22. BETAMETHASONE [Concomitant]
     Active Substance: BETAMETHASONE
     Dosage: 4.0MG EVERY 12 HOURS
     Route: 042
     Dates: start: 20251027, end: 20251030
  23. ZYPREXA ZYDIS [Concomitant]
     Active Substance: OLANZAPINE
     Indication: Antiemetic supportive care
     Route: 048
     Dates: start: 20251027, end: 20251029
  24. ZYPREXA ZYDIS [Concomitant]
     Active Substance: OLANZAPINE
     Route: 048
     Dates: start: 20251027, end: 20251027
  25. ZYPREXA ZYDIS [Concomitant]
     Active Substance: OLANZAPINE
     Route: 048
     Dates: start: 2025
  26. DIPHENHYDRAMINE HYDROCHLORIDE [Concomitant]
     Active Substance: DIPHENHYDRAMINE HYDROCHLORIDE
     Indication: Chemotherapy side effect prophylaxis
     Dosage: 30.0MG EVERY 12 HOURS
     Route: 042
     Dates: start: 2025
  27. DIPHENHYDRAMINE HYDROCHLORIDE [Concomitant]
     Active Substance: DIPHENHYDRAMINE HYDROCHLORIDE
     Dosage: 30.0MG EVERY 12 HOURS?DIPHENHYDRAMINE HYDROCHLORIDE INJECTION 3% ^Y.Y.^
     Route: 042
     Dates: start: 20251027, end: 20251030
  28. ACETAL [Concomitant]
     Indication: Analgesic therapy
     Route: 048
     Dates: start: 2025
  29. ACETAL [Concomitant]
     Dosage: ACETAL TABLET 500MG (ACETAMINOPHEN) ^PURZER^
     Route: 048
     Dates: start: 20251023, end: 20251103
  30. SMOFLIPID [Concomitant]
     Active Substance: FISH OIL\MEDIUM-CHAIN TRIGLYCERIDES\OLIVE OIL\SOYBEAN OIL
     Indication: Malnutrition
     Dosage: STRENGTH: 60.0MG/60.0MG/50.0MG/30.0MG
     Route: 042
     Dates: start: 2025
  31. SMOFLIPID [Concomitant]
     Active Substance: FISH OIL\MEDIUM-CHAIN TRIGLYCERIDES\OLIVE OIL\SOYBEAN OIL
     Dosage: STRENGTH: 60.0MG/60.0MG/50.0MG/30.0MG?SMOFLIPID 20% EMULSION FOR INFUSION
     Route: 042
     Dates: start: 20251020, end: 20251028
  32. FLUOROURACIL\IRINOTECAN\LEUCOVORIN [Concomitant]
     Active Substance: FLUOROURACIL\IRINOTECAN\LEUCOVORIN
     Indication: Gastric cancer recurrent
     Route: 065
     Dates: start: 20251027

REACTIONS (6)
  - Jaundice cholestatic [Unknown]
  - Rash [Recovered/Resolved]
  - Anaemia [Unknown]
  - Malnutrition [Recovering/Resolving]
  - Off label use [Unknown]
  - Infusion site rash [Recovered/Resolved]

NARRATIVE: CASE EVENT DATE: 20250101
